FAERS Safety Report 16601726 (Version 1)
Quarter: 2019Q3

REPORT INFORMATION
  Report Type: Spontaneous
  Country: GB (occurrence: GB)
  Receive Date: 20190719
  Receipt Date: 20190719
  Transmission Date: 20191004
  Serious: Yes (Disabling, Other)
  Sender: FDA-Public Use
  Company Number: GB-GLAXOSMITHKLINE-GB2019130411

PATIENT
  Age: 40 Year
  Sex: Male
  Weight: 88 kg

DRUGS (7)
  1. KENALOG [Concomitant]
     Active Substance: TRIAMCINOLONE ACETONIDE
     Dosage: KENALOG-40
     Route: 065
     Dates: start: 20190419
  2. CETIRIZINE DIHYDROCHLORIDE [Concomitant]
     Active Substance: CETIRIZINE HYDROCHLORIDE
     Indication: SEASONAL ALLERGY
     Dosage: UNK
     Route: 065
  3. KETOCONAZOLE. [Concomitant]
     Active Substance: KETOCONAZOLE
     Indication: PRODUCT USED FOR UNKNOWN INDICATION
     Dosage: 1 DF, EVERY 2 WEEK
     Route: 065
  4. FEXOFENADINE HYDROCHLORIDE. [Concomitant]
     Active Substance: FEXOFENADINE HYDROCHLORIDE
     Indication: SEASONAL ALLERGY
     Dosage: UNK
     Route: 065
  5. KENALOG [Concomitant]
     Active Substance: TRIAMCINOLONE ACETONIDE
     Indication: SEASONAL ALLERGY
     Dosage: UNK
     Route: 065
     Dates: start: 20190217
  6. PROSCAR [Concomitant]
     Active Substance: FINASTERIDE
     Indication: ALOPECIA
     Dosage: 2.5 MG, WE
     Route: 065
  7. PIRINASE HAYFEVER RELIEF NASAL SPRAY [Suspect]
     Active Substance: FLUTICASONE PROPIONATE
     Indication: SEASONAL ALLERGY
     Dosage: 1 SPRAY PER NOSTRIL
     Route: 045
     Dates: start: 20190201, end: 20190606

REACTIONS (6)
  - Eustachian tube disorder [Unknown]
  - Vision blurred [Recovered/Resolved]
  - Trismus [Recovered/Resolved]
  - Tinnitus [Recovering/Resolving]
  - Anxiety [Recovered/Resolved]
  - Tension headache [Recovered/Resolved]

NARRATIVE: CASE EVENT DATE: 2019
